FAERS Safety Report 17223705 (Version 2)
Quarter: 2020Q1

REPORT INFORMATION
  Report Type: Spontaneous
  Country: US (occurrence: US)
  Receive Date: 20200102
  Receipt Date: 20200203
  Transmission Date: 20200409
  Serious: Yes (Hospitalization)
  Sender: FDA-Public Use
  Company Number: US-CELGENEUS-USA-20191210129

PATIENT
  Age: 71 Year
  Sex: Male

DRUGS (20)
  1. ABRAXANE [Suspect]
     Active Substance: PACLITAXEL
     Indication: NON-SMALL CELL LUNG CANCER STAGE IV
     Dosage: 173 MG
     Route: 042
     Dates: start: 20190919, end: 20190919
  2. CARBOPLATIN. [Suspect]
     Active Substance: CARBOPLATIN
     Indication: NON-SMALL CELL LUNG CANCER STAGE IV
     Dosage: 562 MILLIGRAM
     Route: 042
     Dates: start: 20190912, end: 20190912
  3. CARBOPLATIN. [Suspect]
     Active Substance: CARBOPLATIN
     Indication: NON-SMALL CELL LUNG CANCER STAGE IV
     Dosage: 428 MILLIGRAM
     Route: 042
     Dates: start: 20191024, end: 20191024
  4. OLAPARIB. [Suspect]
     Active Substance: OLAPARIB
     Indication: NON-SMALL CELL LUNG CANCER STAGE IV
     Route: 048
  5. ABRAXANE [Suspect]
     Active Substance: PACLITAXEL
     Indication: NON-SMALL CELL LUNG CANCER STAGE IV
     Dosage: 173 MG
     Route: 042
     Dates: start: 20191003, end: 20191003
  6. ABRAXANE [Suspect]
     Active Substance: PACLITAXEL
     Indication: NON-SMALL CELL LUNG CANCER STAGE IV
     Dosage: 134 MG
     Route: 042
     Dates: start: 20191114, end: 20191114
  7. ABRAXANE [Suspect]
     Active Substance: PACLITAXEL
     Indication: NON-SMALL CELL LUNG CANCER STAGE IV
     Dosage: 173 MG
     Route: 042
     Dates: start: 20190912, end: 20190912
  8. ABRAXANE [Suspect]
     Active Substance: PACLITAXEL
     Indication: NON-SMALL CELL LUNG CANCER STAGE IV
     Dosage: 134 MG
     Route: 042
     Dates: start: 20191107, end: 20191107
  9. DURVALUMAB. [Suspect]
     Active Substance: DURVALUMAB
     Indication: NON-SMALL CELL LUNG CANCER STAGE IV
     Dosage: 1500 MILLIGRAM
     Route: 042
     Dates: start: 20190912, end: 20190912
  10. CARBOPLATIN. [Suspect]
     Active Substance: CARBOPLATIN
     Indication: NON-SMALL CELL LUNG CANCER STAGE IV
     Dosage: 562 MILLIGRAM
     Route: 042
     Dates: start: 20191003, end: 20191003
  11. ABRAXANE [Suspect]
     Active Substance: PACLITAXEL
     Indication: NON-SMALL CELL LUNG CANCER STAGE IV
     Dosage: 173 MG
     Route: 042
     Dates: start: 20190926, end: 20190926
  12. DURVALUMAB. [Suspect]
     Active Substance: DURVALUMAB
     Indication: NON-SMALL CELL LUNG CANCER STAGE IV
     Dosage: 1500 MILLIGRAM
     Route: 042
     Dates: start: 20191024, end: 20191024
  13. CARBOPLATIN. [Suspect]
     Active Substance: CARBOPLATIN
     Indication: NON-SMALL CELL LUNG CANCER STAGE IV
     Dosage: 428 MILLIGRAM
     Route: 042
     Dates: start: 20191114, end: 20191114
  14. ABRAXANE [Suspect]
     Active Substance: PACLITAXEL
     Indication: NON-SMALL CELL LUNG CANCER STAGE IV
     Dosage: 134 MG
     Route: 042
     Dates: start: 20191024, end: 20191024
  15. DURVALUMAB. [Suspect]
     Active Substance: DURVALUMAB
     Indication: NON-SMALL CELL LUNG CANCER STAGE IV
     Dosage: 1500 MILLIGRAM
     Route: 042
     Dates: start: 20191003, end: 20191003
  16. ABRAXANE [Suspect]
     Active Substance: PACLITAXEL
     Indication: NON-SMALL CELL LUNG CANCER STAGE IV
     Dosage: 134 MG
     Route: 042
     Dates: start: 20191017, end: 20191017
  17. ABRAXANE [Suspect]
     Active Substance: PACLITAXEL
     Indication: NON-SMALL CELL LUNG CANCER STAGE IV
     Dosage: 134 MG
     Route: 042
     Dates: start: 20191031, end: 20191031
  18. ABRAXANE [Suspect]
     Active Substance: PACLITAXEL
     Indication: NON-SMALL CELL LUNG CANCER STAGE IV
     Dosage: 134 MG
     Route: 042
     Dates: start: 20191121, end: 20191121
  19. ABRAXANE [Suspect]
     Active Substance: PACLITAXEL
     Indication: NON-SMALL CELL LUNG CANCER STAGE IV
     Dosage: 134 MG
     Route: 042
     Dates: start: 20191127, end: 20191127
  20. DURVALUMAB. [Suspect]
     Active Substance: DURVALUMAB
     Indication: NON-SMALL CELL LUNG CANCER STAGE IV
     Dosage: 1500 MILLIGRAM
     Route: 042
     Dates: start: 20191114, end: 20191114

REACTIONS (1)
  - Abdominal abscess [Recovered/Resolved]

NARRATIVE: CASE EVENT DATE: 20191210
